FAERS Safety Report 21280437 (Version 1)
Quarter: 2022Q3

REPORT INFORMATION
  Report Type: Spontaneous
  Country: US (occurrence: None)
  Receive Date: 20220901
  Receipt Date: 20220901
  Transmission Date: 20221026
  Serious: No
  Sender: FDA-Public Use
  Company Number: None

PATIENT
  Age: 71 Year
  Sex: Female
  Weight: 56.25 kg

DRUGS (2)
  1. TRELEGY ELLIPTA [Suspect]
     Active Substance: FLUTICASONE FUROATE\UMECLIDINIUM BROMIDE\VILANTEROL TRIFENATATE
     Indication: Asthma
     Dosage: OTHER QUANTITY : 1 INHALATION(S);?FREQUENCY : DAILY;?
     Route: 055
     Dates: start: 20220630, end: 20220722
  2. TRELEGY ELLIPTA [Suspect]
     Active Substance: FLUTICASONE FUROATE\UMECLIDINIUM BROMIDE\VILANTEROL TRIFENATATE
     Indication: Bronchopulmonary aspergillosis allergic

REACTIONS (10)
  - Oral pain [None]
  - Tongue discolouration [None]
  - Oral mucosal eruption [None]
  - Dry throat [None]
  - Sinus disorder [None]
  - Throat irritation [None]
  - Decreased appetite [None]
  - Taste disorder [None]
  - Bronchitis [None]
  - Asthma [None]

NARRATIVE: CASE EVENT DATE: 20220712
